FAERS Safety Report 21471322 (Version 4)
Quarter: 2023Q1

REPORT INFORMATION
  Report Type: Report from Study
  Country: CA (occurrence: CA)
  Receive Date: 20221018
  Receipt Date: 20230314
  Transmission Date: 20230417
  Serious: Yes (Other)
  Sender: FDA-Public Use
  Company Number: CA-JNJFOC-20220612804

PATIENT
  Age: 62 Year
  Sex: Female
  Weight: 113 kg

DRUGS (4)
  1. REMICADE [Suspect]
     Active Substance: INFLIXIMAB
     Indication: Pyoderma gangrenosum
     Dosage: EXPIRATION DATE: 31-JUL-2025
     Route: 042
     Dates: start: 20210217
  2. REMICADE [Suspect]
     Active Substance: INFLIXIMAB
     Route: 041
     Dates: start: 202206
  3. REMICADE [Suspect]
     Active Substance: INFLIXIMAB
     Route: 041
     Dates: start: 2022
  4. PREDNISONE [Concomitant]
     Active Substance: PREDNISONE
     Indication: Product used for unknown indication
     Dosage: DAILY FOR 2 YEARS
     Route: 065

REACTIONS (7)
  - Ileostomy [Unknown]
  - Pyoderma gangrenosum [Not Recovered/Not Resolved]
  - Polymyalgia rheumatica [Unknown]
  - Tremor [Unknown]
  - Oropharyngeal pain [Unknown]
  - Palpitations [Not Recovered/Not Resolved]
  - Dyspnoea [Unknown]

NARRATIVE: CASE EVENT DATE: 20230207
